FAERS Safety Report 10748538 (Version 1)
Quarter: 2015Q1

REPORT INFORMATION
  Report Type: Spontaneous
  Country: US (occurrence: None)
  Receive Date: 20150128
  Receipt Date: 20150128
  Transmission Date: 20150721
  Serious: Yes (Hospitalization)
  Sender: FDA-Public Use
  Company Number: None

PATIENT
  Age: 67 Year
  Sex: Female
  Weight: 66.2 kg

DRUGS (23)
  1. METHOTREXATE [Suspect]
     Active Substance: METHOTREXATE
     Dates: end: 20150108
  2. ALUMINUM-MAGNESIUM WITH SIMETHICONE [Concomitant]
  3. PANTOPRAZOLE [Concomitant]
     Active Substance: PANTOPRAZOLE SODIUM
  4. PROCHLORPERAZINE. [Concomitant]
     Active Substance: PROCHLORPERAZINE
  5. SUCRALFATE. [Concomitant]
     Active Substance: SUCRALFATE
  6. FLUCONAZOLE. [Concomitant]
     Active Substance: FLUCONAZOLE
  7. METROPROLOL TARTRATE [Concomitant]
     Active Substance: METOPROLOL TARTRATE
  8. NEUPOGEN [Concomitant]
     Active Substance: FILGRASTIM
  9. CYTARABINE. [Suspect]
     Active Substance: CYTARABINE
     Dates: end: 20141226
  10. ALLOPURINOL. [Concomitant]
     Active Substance: ALLOPURINOL
  11. ONDANSETRON [Concomitant]
     Active Substance: ONDANSETRON
  12. TRAMADOL [Concomitant]
     Active Substance: TRAMADOL
  13. DAUNORUBICIN [Suspect]
     Active Substance: DAUNORUBICIN
     Dates: end: 20150123
  14. DEXAMETHASONE. [Suspect]
     Active Substance: DEXAMETHASONE
     Dates: end: 20150101
  15. ESCITALOPRAM [Concomitant]
     Active Substance: ESCITALOPRAM OXALATE
  16. POLYETHYLENE GLYCOL (MIRALAX) [Concomitant]
  17. SENNOSIDES WITH DOCUSATE [Concomitant]
  18. SULFAMETHOXAZOLE WITH TRIMETHOPRIM [Concomitant]
  19. ALPRAZOLAM. [Concomitant]
     Active Substance: ALPRAZOLAM
  20. ENOXAPARIN [Concomitant]
     Active Substance: ENOXAPARIN
  21. ACYCLOVIR. [Concomitant]
     Active Substance: ACYCLOVIR
  22. LORAZEPAM. [Concomitant]
     Active Substance: LORAZEPAM
  23. VINCRISTINE SULFATE. [Suspect]
     Active Substance: VINCRISTINE SULFATE
     Dates: end: 20150123

REACTIONS (5)
  - Pulmonary embolism [None]
  - Dysuria [None]
  - Electrocardiogram T wave inversion [None]
  - Diarrhoea [None]
  - Abdominal pain upper [None]

NARRATIVE: CASE EVENT DATE: 20150116
